FAERS Safety Report 6390256-0 (Version None)
Quarter: 2009Q4

REPORT INFORMATION
  Report Type: 
  Country: None (occurrence: None)
  Receive Date: 20091006
  Receipt Date: 20091001
  Transmission Date: 20100525
  Serious: Yes (Other)
  Sender: FDA-Public Use
  Company Number: B0596394A

PATIENT
  Age: 37 Year
  Sex: Male

DRUGS (10)
  1. AUGMENTIN '125' [Suspect]
     Dosage: 2G THREE TIMES PER DAY
     Route: 042
     Dates: start: 20090328, end: 20090401
  2. FENTANYL-100 [Suspect]
     Indication: ENDOTRACHEAL INTUBATION
     Route: 042
     Dates: start: 20090328, end: 20090406
  3. PHENYTOIN [Suspect]
     Indication: PROPHYLAXIS
     Dosage: 100MG THREE TIMES PER DAY
     Route: 042
     Dates: start: 20090328, end: 20090406
  4. CEFOTAXIME [Suspect]
     Dosage: 2G THREE TIMES PER DAY
     Route: 065
     Dates: start: 20090401, end: 20090411
  5. PROPOFOL [Suspect]
     Indication: SEDATION
     Route: 042
     Dates: start: 20090328
  6. CISATRACURIUM [Suspect]
     Indication: ENDOTRACHEAL INTUBATION
     Route: 042
     Dates: start: 20090328
  7. CLEXANE [Suspect]
     Indication: PROPHYLAXIS
     Dosage: 40MG PER DAY
     Route: 058
     Dates: start: 20090328
  8. MIDAZOLAM HCL [Suspect]
     Indication: SEDATION
     Route: 042
     Dates: start: 20090328
  9. PRIMPERAN [Suspect]
     Indication: GASTROINTESTINAL MOTILITY DISORDER
     Dosage: 10MG THREE TIMES PER DAY
     Route: 065
     Dates: start: 20090402
  10. CLONAZEPAM [Suspect]
     Indication: SEDATION
     Dosage: 10MG THREE TIMES PER DAY
     Route: 065
     Dates: start: 20090329

REACTIONS (1)
  - HYPERTRANSAMINASAEMIA [None]
